FAERS Safety Report 23392529 (Version 1)
Quarter: 2024Q1

REPORT INFORMATION
  Report Type: Report from Study
  Country: US (occurrence: US)
  Receive Date: 20240111
  Receipt Date: 20240111
  Transmission Date: 20240410
  Serious: Yes (Hospitalization)
  Sender: FDA-Public Use
  Company Number: US-Eisai-EC-2024-156497

PATIENT
  Age: 86 Year
  Sex: Female
  Weight: 62.14 kg

DRUGS (5)
  1. LENVIMA [Suspect]
     Active Substance: LENVATINIB
     Indication: Endometrial cancer metastatic
     Route: 048
     Dates: start: 20231221, end: 20231221
  2. KEYTRUDA [Suspect]
     Active Substance: PEMBROLIZUMAB
     Indication: Endometrial cancer metastatic
     Dosage: UNKNOWN DOSE AND FREQUENCY
     Route: 042
     Dates: start: 20231221
  3. COZAAR [Concomitant]
     Active Substance: LOSARTAN POTASSIUM
  4. ZOFRAN [Concomitant]
     Active Substance: ONDANSETRON HYDROCHLORIDE
  5. MILK OF MAGNESIA [Concomitant]
     Active Substance: MAGNESIUM HYDROXIDE

REACTIONS (7)
  - Urinary tract infection [Unknown]
  - Nausea [Unknown]
  - Vomiting [Unknown]
  - Blood sodium decreased [Unknown]
  - Asthenia [Unknown]
  - Food intolerance [Unknown]
  - Pain [Unknown]

NARRATIVE: CASE EVENT DATE: 20231201
